FAERS Safety Report 7463985-5 (Version None)
Quarter: 2011Q2

REPORT INFORMATION
  Report Type: 
  Country: None (occurrence: None)
  Receive Date: 20110506
  Receipt Date: 20110425
  Transmission Date: 20111010
  Serious: Yes (Other)
  Sender: FDA-Public Use
  Company Number: CHPA2011US06351

PATIENT
  Sex: Female

DRUGS (4)
  1. EXCEDRIN (MIGRAINE) [Suspect]
     Indication: MIGRAINE
  2. EXCEDRIN (MIGRAINE) [Suspect]
     Indication: NECK PAIN
     Dosage: UNK, UNK
     Dates: start: 20100101
  3. EXCEDRIN (MIGRAINE) [Suspect]
     Indication: PAIN IN JAW
  4. EXCEDRIN (MIGRAINE) [Suspect]
     Indication: MUSCULOSKELETAL PAIN

REACTIONS (2)
  - ANEURYSM RUPTURED [None]
  - HAEMORRHAGIC STROKE [None]
